FAERS Safety Report 19196779 (Version 1)
Quarter: 2021Q2

REPORT INFORMATION
  Report Type: Spontaneous
  Country: US (occurrence: US)
  Receive Date: 20210429
  Receipt Date: 20210429
  Transmission Date: 20210717
  Serious: Yes (Other)
  Sender: FDA-Public Use
  Company Number: US-NOVOPROD-805072

PATIENT
  Age: 72 Year
  Sex: Female

DRUGS (3)
  1. LEVEMIR [Suspect]
     Active Substance: INSULIN DETEMIR
     Indication: PRODUCT USED FOR UNKNOWN INDICATION
     Dosage: 55 IU, QD (BEDTIME)
     Route: 058
     Dates: start: 2016
  2. NOVOLOG [Suspect]
     Active Substance: INSULIN ASPART
     Indication: PRODUCT USED FOR UNKNOWN INDICATION
     Dosage: UNK
     Route: 058
     Dates: start: 2011
  3. FIASP 3ML PDS290 [Suspect]
     Active Substance: INSULIN ASPART
     Indication: PRODUCT USED FOR UNKNOWN INDICATION
     Dosage: 24 IU, BID (BEFORE MEALS AND AT BEDTIME)
     Route: 065
     Dates: start: 2016

REACTIONS (7)
  - Dry eye [Unknown]
  - Blood glucose decreased [Recovered/Resolved]
  - Nephropathy [Unknown]
  - Cataract [Recovered/Resolved]
  - Blood glucose increased [Not Recovered/Not Resolved]
  - Visual impairment [Unknown]
  - Thyroid mass [Unknown]

NARRATIVE: CASE EVENT DATE: 2016
